FAERS Safety Report 8380445-8 (Version None)
Quarter: 2012Q2

REPORT INFORMATION
  Report Type: 
  Country: None (occurrence: None)
  Receive Date: 20120523
  Receipt Date: 20120517
  Transmission Date: 20120825
  Serious: Yes (Other)
  Sender: FDA-Public Use
  Company Number: US-GLAXOSMITHKLINE-A0972183A

PATIENT
  Age: 39 Year
  Sex: Female
  Weight: 48.2 kg

DRUGS (2)
  1. HORIZANT [Suspect]
     Indication: RESTLESS LEGS SYNDROME
     Dosage: 600MG SINGLE DOSE
     Route: 048
     Dates: start: 20120301, end: 20120301
  2. IBUPROFEN [Concomitant]

REACTIONS (5)
  - DIZZINESS [None]
  - GAIT DISTURBANCE [None]
  - ASTHENIA [None]
  - HYPOAESTHESIA [None]
  - MUSCULOSKELETAL DISORDER [None]
